FAERS Safety Report 7521831-5 (Version None)
Quarter: 2011Q2

REPORT INFORMATION
  Report Type: 
  Country: None (occurrence: None)
  Receive Date: 20110603
  Receipt Date: 20110523
  Transmission Date: 20111010
  Serious: Yes (Death, Hospitalization, Other)
  Sender: FDA-Public Use
  Company Number: US-CELGENEUS-163-21880-11053011

PATIENT
  Sex: Female

DRUGS (7)
  1. SOLU-MEDROL [Concomitant]
     Route: 065
     Dates: start: 20100301
  2. DILAUDID [Concomitant]
     Indication: DISCOMFORT
     Route: 065
     Dates: start: 20100301
  3. DECADRON [Concomitant]
     Indication: MULTIPLE MYELOMA
     Route: 065
     Dates: start: 20100215
  4. REVLIMID [Suspect]
     Indication: MULTIPLE MYELOMA
     Dosage: 10 MILLIGRAM
     Route: 048
     Dates: start: 20100215, end: 20100101
  5. ACYCLOVIR [Concomitant]
     Route: 065
     Dates: start: 20100301
  6. VELCADE [Concomitant]
     Indication: MULTIPLE MYELOMA
     Route: 065
     Dates: start: 20100215
  7. BROAD SPECTRUM ANTIBIOTICS [Concomitant]
     Route: 065
     Dates: start: 20100301

REACTIONS (3)
  - DEATH [None]
  - ACUTE RESPIRATORY DISTRESS SYNDROME [None]
  - PYREXIA [None]
